FAERS Safety Report 7605465-X (Version None)
Quarter: 2011Q3

REPORT INFORMATION
  Report Type: 
  Country: None (occurrence: None)
  Receive Date: 20110713
  Receipt Date: 20110706
  Transmission Date: 20111222
  Serious: Yes (Other)
  Sender: FDA-Public Use
  Company Number: US-PFIZER INC-US-WYE-H15550410

PATIENT
  Sex: Female
  Weight: 74.83 kg

DRUGS (8)
  1. PREMARIN [Suspect]
     Dosage: 0.3 MG
     Dates: start: 20010101, end: 20040101
  2. PREMPRO [Suspect]
     Indication: HORMONE REPLACEMENT THERAPY
     Dosage: 0.3/1.5 MG
     Route: 048
     Dates: start: 20040101, end: 20090401
  3. MEDROXYPROGESTERONE ACETATE [Suspect]
     Indication: HORMONE REPLACEMENT THERAPY
     Dosage: 5 MG
     Route: 048
     Dates: start: 19870101, end: 20040101
  4. CYCRIN [Suspect]
     Indication: HORMONE REPLACEMENT THERAPY
     Dosage: UNK
     Route: 048
  5. PREMARIN [Suspect]
     Indication: HORMONE REPLACEMENT THERAPY
     Dosage: 0.625 MG, UNK
     Route: 048
     Dates: start: 19870101, end: 20010101
  6. LISINOPRIL [Concomitant]
     Indication: HYPERTENSION
     Dosage: UNK
     Dates: start: 20080101
  7. BONIVA [Concomitant]
     Indication: OSTEOPOROSIS
     Dosage: UNK
     Dates: start: 20070101
  8. NORETHINDRONE ACETATE [Suspect]
     Indication: HORMONE REPLACEMENT THERAPY
     Dosage: UNK

REACTIONS (1)
  - BREAST CANCER FEMALE [None]
